FAERS Safety Report 11597174 (Version 1)
Quarter: 2015Q3

REPORT INFORMATION
  Report Type: Spontaneous
  Country: US (occurrence: US)
  Receive Date: 20150916
  Receipt Date: 20150916
  Transmission Date: 20151125
  Serious: No
  Sender: FDA-Public Use
  Company Number: US-ELI_LILLY_AND_COMPANY-US200801005453

PATIENT
  Age: 52 Year
  Sex: Female

DRUGS (2)
  1. AMBIEN [Concomitant]
     Active Substance: ZOLPIDEM TARTRATE
     Indication: SLEEP DISORDER
     Dosage: UNK, EACH EVENING
  2. FORTEO [Suspect]
     Active Substance: TERIPARATIDE
     Indication: OSTEOPOROSIS
     Dates: start: 20080123

REACTIONS (5)
  - Dyskinesia [Recovering/Resolving]
  - Sleep disorder [Recovering/Resolving]
  - Abnormal dreams [Recovering/Resolving]
  - Nausea [Recovering/Resolving]
  - Inappropriate affect [Recovering/Resolving]

NARRATIVE: CASE EVENT DATE: 200801
